FAERS Safety Report 9525296 (Version 1)
Quarter: 2013Q1

REPORT INFORMATION
  Report Type: Spontaneous
  Country: US (occurrence: None)
  Receive Date: 20130313
  Receipt Date: 20130313
  Transmission Date: 20140127
  Serious: No
  Sender: FDA-Public Use
  Company Number: 1000029772

PATIENT
  Age: 59 None
  Sex: Female

DRUGS (8)
  1. SAVELLA (MILNACIPRAN HYDROCHLORIDE) (12.5 MILLIGRAM, TABLETS) [Suspect]
     Indication: PAIN
     Route: 048
     Dates: start: 2011, end: 2011
  2. BACLOFEN [Concomitant]
  3. NEURONTIN (GABAPENTIN) [Concomitant]
  4. NAMENDA (MEMANTINE HYDROCHLORIDE) [Concomitant]
  5. VITAMIN D [Concomitant]
  6. AMLODIPINE BESYLATE (AMLODIPINE BESILATE) [Concomitant]
  7. SIMVASTATIN [Concomitant]
  8. ALLERCLEAR (LORATADINE) [Concomitant]

REACTIONS (5)
  - Affect lability [None]
  - Mood swings [None]
  - Chills [None]
  - Night sweats [None]
  - Off label use [None]
